FAERS Safety Report 8797436 (Version 2)
Quarter: 2013Q2

REPORT INFORMATION
  Report Type: Spontaneous
  Country: US (occurrence: US)
  Receive Date: 20120920
  Receipt Date: 20130502
  Transmission Date: 20140414
  Serious: No
  Sender: FDA-Public Use
  Company Number: US-PFIZER INC-2012230824

PATIENT
  Age: 57 Year
  Sex: Female
  Weight: 59 kg

DRUGS (3)
  1. PREMPRO [Suspect]
     Indication: MENOPAUSAL SYMPTOMS
     Dosage: 1 DF, 1X/DAY, (0.45/1.5 MG)
     Route: 048
     Dates: start: 2010
  2. PREMPRO [Suspect]
     Indication: ANXIETY
     Dosage: UNK
     Dates: start: 201209
  3. PREMPRO [Suspect]
     Indication: HOT FLUSH

REACTIONS (2)
  - Drug ineffective [Recovered/Resolved]
  - Product quality issue [Unknown]
